FAERS Safety Report 16659109 (Version 1)
Quarter: 2019Q3

REPORT INFORMATION
  Report Type: Spontaneous
  Country: IT (occurrence: IT)
  Receive Date: 20190802
  Receipt Date: 20190802
  Transmission Date: 20191004
  Serious: Yes (Hospitalization)
  Sender: FDA-Public Use
  Company Number: IT-SUN PHARMACEUTICAL INDUSTRIES LTD-2019RR-215984

PATIENT
  Age: 97 Year
  Sex: Male

DRUGS (3)
  1. OLANZAPINE. [Suspect]
     Active Substance: OLANZAPINE
     Indication: PRODUCT ADMINISTRATION ERROR
     Dosage: IN TOTAL
     Route: 048
     Dates: start: 20190624, end: 20190624
  2. NOZINAN 100 MG COMPRESSE RIVESTITE CON FILM [Suspect]
     Active Substance: LEVOMEPROMAZINE MALEATE
     Indication: PRODUCT ADMINISTRATION ERROR
     Dosage: IN TOTAL
     Route: 048
     Dates: start: 20190624, end: 20190624
  3. ENTUMIN 40 MG COMPRESSE [Suspect]
     Active Substance: CLOTHIAPINE
     Indication: PRODUCT ADMINISTRATION ERROR
     Dosage: IN TOTAL
     Route: 048
     Dates: start: 20190624, end: 20190624

REACTIONS (2)
  - Depressed level of consciousness [Recovering/Resolving]
  - Medication error [Recovering/Resolving]

NARRATIVE: CASE EVENT DATE: 20190624
